FAERS Safety Report 13071508 (Version 1)
Quarter: 2016Q4

REPORT INFORMATION
  Report Type: Spontaneous
  Country: HK (occurrence: US)
  Receive Date: 20161228
  Receipt Date: 20161228
  Transmission Date: 20170207
  Serious: Yes (Hospitalization)
  Sender: FDA-Public Use
  Company Number: None

PATIENT
  Age: 64 Year
  Sex: Male
  Weight: 49.7 kg

DRUGS (1)
  1. CISPLATIN. [Suspect]
     Active Substance: CISPLATIN
     Dates: end: 20161214

REACTIONS (5)
  - Hypotension [None]
  - Neutrophil count decreased [None]
  - Pyrexia [None]
  - Chills [None]
  - Mucosal inflammation [None]

NARRATIVE: CASE EVENT DATE: 20161214
